FAERS Safety Report 9003197 (Version 2)
Quarter: 2013Q1

REPORT INFORMATION
  Report Type: Spontaneous
  Country: US (occurrence: US)
  Receive Date: 20130108
  Receipt Date: 20130207
  Transmission Date: 20140127
  Serious: Yes (Other)
  Sender: FDA-Public Use
  Company Number: PHEH2012US010884

PATIENT
  Sex: Female

DRUGS (11)
  1. VALTURNA [Suspect]
     Dosage: 1 DF (300/320 MG), UNK
     Dates: start: 2009
  2. DIOVAN [Suspect]
     Indication: BLOOD PRESSURE ABNORMAL
     Dosage: 320 MG, QD
     Route: 048
     Dates: start: 2009
  3. ALPRAZOLAM [Suspect]
     Indication: ANXIETY
     Dosage: 0.25 MG, HALF ONE DAY
     Route: 048
  4. CARVEDILOL [Concomitant]
     Indication: BLOOD PRESSURE
     Dosage: 3.125 MG, BID
     Route: 048
  5. TORSEMIDE [Concomitant]
     Dosage: 10 MG, HALF ONE DAY
     Route: 048
  6. POTASSIUM [Concomitant]
     Indication: SUPPLEMENTATION THERAPY
     Dosage: 10 MG, QD
     Route: 048
  7. CARDURA [Concomitant]
     Indication: BLOOD PRESSURE
     Dosage: 1 MG, QD
     Route: 048
  8. BABY ASPIRIN [Concomitant]
     Indication: CARDIAC DISORDER
     Dosage: 81 MG, QD
     Route: 048
  9. CLONIDINE [Concomitant]
     Indication: BLOOD PRESSURE
     Dosage: 1 MG, QD
     Route: 048
  10. VITAMINS NOS [Concomitant]
  11. MULTIVITAMIN//VITAMINS NOS [Concomitant]
     Dosage: UNK

REACTIONS (8)
  - Blood pressure fluctuation [Unknown]
  - Syncope [Unknown]
  - Dizziness [Unknown]
  - Arrhythmia [Unknown]
  - Urinary tract infection [Unknown]
  - Feeling abnormal [Unknown]
  - Heart rate increased [Unknown]
  - Abdominal discomfort [Unknown]
